FAERS Safety Report 6919652-7 (Version None)
Quarter: 2010Q3

REPORT INFORMATION
  Report Type: 
  Country: None (occurrence: None)
  Receive Date: 20100809
  Receipt Date: 20100727
  Transmission Date: 20110219
  Serious: Yes (Life-Threatening, Other)
  Sender: FDA-Public Use
  Company Number: LEO-2010-00678

PATIENT
  Age: 60 Year
  Sex: Female

DRUGS (3)
  1. DOVONEX [Suspect]
     Indication: PSORIASIS
     Dosage: 20 GM, TOPICAL
     Route: 061
     Dates: start: 20100612, end: 20100726
  2. CYCLOSPORINE [Suspect]
     Indication: PSORIASIS
     Dosage: 150 MG
     Dates: start: 20100612, end: 20100726
  3. OXAROL (MAXACALCITOL) [Concomitant]

REACTIONS (3)
  - BLOOD CREATININE INCREASED [None]
  - DEHYDRATION [None]
  - HYPERCALCAEMIA [None]
